FAERS Safety Report 6735037-0 (Version None)
Quarter: 2010Q2

REPORT INFORMATION
  Report Type: 
  Country: None (occurrence: None)
  Receive Date: 20100521
  Receipt Date: 20100514
  Transmission Date: 20101027
  Serious: Yes (Other)
  Sender: FDA-Public Use
  Company Number: US-BAYER-201022778NA

PATIENT
  Sex: Female

DRUGS (2)
  1. YAZ [Suspect]
     Indication: ACNE
     Dates: start: 20071001
  2. YASMIN [Suspect]
     Indication: ACNE
     Dates: start: 20071001

REACTIONS (5)
  - GALLBLADDER DISORDER [None]
  - HEPATIC CYST [None]
  - HEPATIC LESION [None]
  - RENAL CYST [None]
  - RENAL INJURY [None]
